FAERS Safety Report 5937081-X (Version None)
Quarter: 2008Q4

REPORT INFORMATION
  Report Type: 
  Country: None (occurrence: None)
  Receive Date: 20081031
  Receipt Date: 20081027
  Transmission Date: 20090506
  Serious: Yes (Hospitalization)
  Sender: FDA-Public Use
  Company Number: FR-BRISTOL-MYERS SQUIBB COMPANY-14386916

PATIENT
  Age: 81 Year
  Sex: Female

DRUGS (4)
  1. COUMADIN [Suspect]
     Indication: ISCHAEMIC STROKE
     Dates: start: 20060101, end: 20080918
  2. IXEL [Concomitant]
  3. TOFRANIL [Concomitant]
  4. PRAZEPAM [Concomitant]

REACTIONS (2)
  - APHASIA [None]
  - HAEMORRHAGIC STROKE [None]
